FAERS Safety Report 22102380 (Version 1)
Quarter: 2023Q1

REPORT INFORMATION
  Report Type: Spontaneous
  Country: JP (occurrence: JP)
  Receive Date: 20230316
  Receipt Date: 20230316
  Transmission Date: 20230418
  Serious: Yes (Hospitalization)
  Sender: FDA-Public Use
  Company Number: JP-MYLANLABS-2023M1027611

PATIENT
  Age: 2 Year
  Sex: Male

DRUGS (11)
  1. CEFCAPENE [Suspect]
     Active Substance: CEFCAPENE
     Indication: Puncture site infection
     Dosage: UNK
     Route: 048
  2. VANCOMYCIN [Suspect]
     Active Substance: VANCOMYCIN
     Indication: Puncture site infection
     Dosage: 30 MILLIGRAM/KILOGRAM
     Route: 042
  3. CLARITHROMYCIN [Suspect]
     Active Substance: CLARITHROMYCIN
     Indication: Puncture site infection
     Dosage: 10 MILLIGRAM/KILOGRAM, QD
     Route: 048
  4. SULFAMETHOXAZOLE\TRIMETHOPRIM [Suspect]
     Active Substance: SULFAMETHOXAZOLE\TRIMETHOPRIM
     Indication: Puncture site infection
     Dosage: UNK
     Route: 048
  5. CEFAZOLIN [Suspect]
     Active Substance: CEFAZOLIN
     Indication: Puncture site infection
     Dosage: 25 MILLIGRAM/KILOGRAM, QD
     Route: 042
  6. CEFOTAXIME [Suspect]
     Active Substance: CEFOTAXIME SODIUM
     Indication: Puncture site infection
     Dosage: 50 MILLIGRAM/KILOGRAM, QD
     Route: 042
  7. MEROPENEM [Suspect]
     Active Substance: MEROPENEM
     Indication: Puncture site infection
     Dosage: 15 MILLIGRAM/KILOGRAM, QD
     Route: 033
  8. AMIKACIN [Suspect]
     Active Substance: AMIKACIN
     Indication: Puncture site infection
     Dosage: 8 MILLIGRAM/KILOGRAM
     Route: 042
  9. IMIPENEM AND CILASTATIN [Concomitant]
     Active Substance: CILASTATIN SODIUM\IMIPENEM
     Indication: Puncture site infection
     Dosage: 25 MILLIGRAM/KILOGRAM, QD
     Route: 065
  10. LINEZOLID [Concomitant]
     Active Substance: LINEZOLID
     Indication: Puncture site infection
     Dosage: 20 MILLIGRAM/KILOGRAM, QD
     Route: 042
  11. PIPERACILLIN SODIUM\TAZOBACTAM SODIUM [Concomitant]
     Active Substance: PIPERACILLIN SODIUM\TAZOBACTAM SODIUM
     Indication: Puncture site infection
     Dosage: 100 MILLIGRAM/KILOGRAM, QD
     Route: 065

REACTIONS (2)
  - Drug ineffective [Unknown]
  - Off label use [Unknown]
